FAERS Safety Report 19745484 (Version 4)
Quarter: 2021Q4

REPORT INFORMATION
  Report Type: Report from Study
  Country: US (occurrence: US)
  Receive Date: 20210825
  Receipt Date: 20211108
  Transmission Date: 20220303
  Serious: Yes (Hospitalization, Other)
  Sender: FDA-Public Use
  Company Number: US-BOEHRINGERINGELHEIM-2020-BI-054138

PATIENT
  Age: 74 Year
  Sex: Male

DRUGS (2)
  1. OFEV [Suspect]
     Active Substance: NINTEDANIB
     Indication: Idiopathic pulmonary fibrosis
     Dosage: 150MG BID
     Route: 048
     Dates: start: 20200601, end: 20210301
  2. OFEV [Suspect]
     Active Substance: NINTEDANIB
     Route: 048
     Dates: start: 20210401

REACTIONS (42)
  - Myocardial infarction [Recovered/Resolved]
  - Blood urine present [Recovered/Resolved]
  - Pneumonia [Recovered/Resolved]
  - Foot fracture [Recovered/Resolved]
  - Myocardial infarction [Recovered/Resolved]
  - Near death experience [Recovered/Resolved]
  - Diarrhoea [Not Recovered/Not Resolved]
  - Blood urine present [Not Recovered/Not Resolved]
  - Gait inability [Not Recovered/Not Resolved]
  - Fall [Recovering/Resolving]
  - Pain in extremity [Not Recovered/Not Resolved]
  - Asthenia [Not Recovered/Not Resolved]
  - Disorientation [Recovered/Resolved]
  - Dyspnoea exertional [Not Recovered/Not Resolved]
  - Reading disorder [Not Recovered/Not Resolved]
  - Movement disorder [Not Recovered/Not Resolved]
  - Pneumonia [Recovered/Resolved with Sequelae]
  - COVID-19 [Unknown]
  - Muscular weakness [Not Recovered/Not Resolved]
  - Illness [Not Recovered/Not Resolved]
  - Pain [Recovered/Resolved]
  - Panic disorder [Not Recovered/Not Resolved]
  - Dyspnoea [Not Recovered/Not Resolved]
  - Pneumonia [Unknown]
  - Mobility decreased [Not Recovered/Not Resolved]
  - Weight decreased [Recovered/Resolved]
  - Fall [Recovered/Resolved]
  - Asthenia [Not Recovered/Not Resolved]
  - Depressed mood [Unknown]
  - Abdominal discomfort [Unknown]
  - Flatulence [Unknown]
  - Pollakiuria [Unknown]
  - Chest discomfort [Unknown]
  - Chills [Unknown]
  - Nausea [Unknown]
  - Chromaturia [Not Recovered/Not Resolved]
  - Abdominal pain upper [Unknown]
  - Decreased appetite [Unknown]
  - Malaise [Unknown]
  - Dyspnoea [Unknown]
  - Dry mouth [Unknown]
  - Infusion site extravasation [Recovered/Resolved]

NARRATIVE: CASE EVENT DATE: 20200911
